FAERS Safety Report 5315059-7 (Version None)
Quarter: 2007Q2

REPORT INFORMATION
  Report Type: 
  Country: None (occurrence: None)
  Receive Date: 20070426
  Receipt Date: 20070413
  Transmission Date: 20071010
  Serious: Yes (Life-Threatening, Hospitalization, Other)
  Sender: FDA-Public Use
  Company Number: 07042092

PATIENT
  Age: 65 Year
  Sex: Female

DRUGS (4)
  1. CITALOPRAM HYDROBROMIDE [Suspect]
     Indication: DEPRESSION
     Dosage: UNK, UNK, ORAL
     Route: 048
  2. FENTANYL [Suspect]
     Indication: BACK PAIN
     Dosage: UNK, UNK, OTHER
     Route: 050
  3. TOLTERODINE TARTRATE [Concomitant]
  4. HYDROCODONE (HYDROCODONE) [Concomitant]

REACTIONS (4)
  - BACK PAIN [None]
  - CONDITION AGGRAVATED [None]
  - MYELODYSPLASTIC SYNDROME [None]
  - SEROTONIN SYNDROME [None]
